FAERS Safety Report 8347551-5 (Version None)
Quarter: 2012Q2

REPORT INFORMATION
  Report Type: 
  Country: None (occurrence: None)
  Receive Date: 20120509
  Receipt Date: 20120426
  Transmission Date: 20120825
  Serious: Yes (Hospitalization, Other)
  Sender: FDA-Public Use
  Company Number: DE-ROCHE-1066433

PATIENT
  Sex: Female
  Weight: 60 kg

DRUGS (5)
  1. PEGASYS [Suspect]
     Indication: HEPATITIS C
     Route: 058
     Dates: start: 20120405
  2. ALISPORIVIR [Suspect]
     Indication: HEPATITIS C
     Route: 048
     Dates: start: 20110405
  3. COPEGUS [Suspect]
     Indication: HEPATITIS C
     Dates: start: 20110405
  4. LEVOTHYROXINE SODIUM [Suspect]
     Indication: PRODUCT USED FOR UNKNOWN INDICATION
  5. METHIMAZOLE [Suspect]
     Indication: HYPERTHYROIDISM
     Dates: start: 20111006, end: 20120117

REACTIONS (3)
  - HYPERTHYROIDISM [None]
  - PANIC ATTACK [None]
  - ANXIETY [None]
